FAERS Safety Report 8841113 (Version 5)
Quarter: 2020Q1

REPORT INFORMATION
  Report Type: Spontaneous
  Country: DE (occurrence: DE)
  Receive Date: 20121015
  Receipt Date: 20200107
  Transmission Date: 20200409
  Serious: Yes (Hospitalization, Congenital Anomaly, Other)
  Sender: FDA-Public Use
  Company Number: DE-MYLANLABS-2012S1020481

PATIENT
  Age: 35 Week
  Sex: Male
  Weight: 1.86 kg

DRUGS (8)
  1. LAMICTAL [Suspect]
     Active Substance: LAMOTRIGINE
     Indication: EPILEPSY
     Dosage: 600 MILLIGRAM, QD, 300 MG, 2X/DAY (BID)
     Route: 064
     Dates: start: 20100225, end: 2010
  2. NASIVIN                            /00070002/ [Concomitant]
     Indication: NASOPHARYNGITIS
     Dosage: UNK
     Route: 064
  3. NASIVIN                            /00070002/ [Concomitant]
     Dosage: UNK
     Route: 064
     Dates: start: 20101022, end: 20101023
  4. LAMICTAL [Suspect]
     Active Substance: LAMOTRIGINE
     Dosage: 300 MG, 2X/DAY (BID)
     Route: 064
     Dates: start: 201003, end: 20101029
  5. CLOZAPINE. [Suspect]
     Active Substance: CLOZAPINE
     Indication: SCHIZOPHRENIA
     Dosage: UNK
     Route: 064
     Dates: start: 20100225, end: 2010
  6. KEPPRA [Suspect]
     Active Substance: LEVETIRACETAM
     Indication: EPILEPSY
     Dosage: 3000 MILLIGRAM, QD, 1500 MG, 2X/DAY (BID)
     Route: 064
     Dates: start: 20100225, end: 2010
  7. KEPPRA [Suspect]
     Active Substance: LEVETIRACETAM
     Dosage: 1500 MG, 2X/DAY (BID)
     Route: 064
     Dates: start: 201003, end: 20101029
  8. CLOZAPINE. [Suspect]
     Active Substance: CLOZAPINE
     Dosage: 100-0-200-200MG
     Route: 064
     Dates: start: 201003, end: 20101029

REACTIONS (8)
  - Neonatal respiratory distress syndrome [Recovered/Resolved]
  - Small for dates baby [Recovering/Resolving]
  - Low birth weight baby [Unknown]
  - Foetal growth restriction [Recovered/Resolved]
  - Premature baby [Unknown]
  - Foetal exposure during pregnancy [Recovered/Resolved]
  - Atrial septal defect [Unknown]
  - Umbilical hernia [Recovered/Resolved with Sequelae]

NARRATIVE: CASE EVENT DATE: 20100225
